FAERS Safety Report 10029309 (Version 2)
Quarter: 2014Q3

REPORT INFORMATION
  Report Type: Report from Study
  Country: SK (occurrence: SK)
  Receive Date: 20140321
  Receipt Date: 20140709
  Transmission Date: 20150326
  Serious: Yes (Life-Threatening)
  Sender: FDA-Public Use
  Company Number: PHHY2014SK033759

PATIENT
  Sex: Male
  Weight: 2.5 kg

DRUGS (1)
  1. GILENYA [Suspect]
     Active Substance: FINGOLIMOD HYDROCHLORIDE
     Indication: MULTIPLE SCLEROSIS
     Dosage: MATERNAL DOSE: 0.5 MG
     Route: 064

REACTIONS (4)
  - Respiratory distress [Unknown]
  - Foetal exposure during pregnancy [Unknown]
  - Neonatal asphyxia [Unknown]
  - Premature baby [Unknown]
